FAERS Safety Report 14301685 (Version 1)
Quarter: 2017Q4

REPORT INFORMATION
  Report Type: Spontaneous
  Country: US (occurrence: US)
  Receive Date: 20171219
  Receipt Date: 20171219
  Transmission Date: 20180321
  Serious: Yes (Hospitalization)
  Sender: FDA-Public Use
  Company Number: US-LPDUSPRD-20171740

PATIENT
  Age: 3 Day
  Sex: Male

DRUGS (1)
  1. AMINOPHYLLINE INJECTION, USP (3810-25) [Suspect]
     Active Substance: AMINOPHYLLINE
     Dosage: 8 MG/KG
     Route: 042

REACTIONS (1)
  - Hyponatraemia [Recovered/Resolved]
